FAERS Safety Report 10961103 (Version 2)
Quarter: 2015Q3

REPORT INFORMATION
  Report Type: Spontaneous
  Country: CA (occurrence: CA)
  Receive Date: 20150327
  Receipt Date: 20150713
  Transmission Date: 20151125
  Serious: Yes (Other)
  Sender: FDA-Public Use
  Company Number: CA-SA-2015SA036381

PATIENT
  Sex: Female

DRUGS (5)
  1. ELOXATIN [Suspect]
     Active Substance: OXALIPLATIN
     Route: 054
  2. XELODA [Suspect]
     Active Substance: CAPECITABINE
     Route: 048
  3. FLUOROURACIL. [Suspect]
     Active Substance: FLUOROURACIL
     Route: 065
  4. GABAPENTIN. [Suspect]
     Active Substance: GABAPENTIN
     Route: 065
  5. XELODA [Suspect]
     Active Substance: CAPECITABINE
     Route: 048

REACTIONS (9)
  - Drug hypersensitivity [Unknown]
  - Amnesia [Unknown]
  - Fatigue [Unknown]
  - Somnolence [Unknown]
  - Disorientation [Unknown]
  - Pain in extremity [Unknown]
  - Confusional state [Unknown]
  - Renal impairment [Unknown]
  - Epistaxis [Unknown]
